FAERS Safety Report 8168479-X (Version None)
Quarter: 2012Q1

REPORT INFORMATION
  Report Type: 
  Country: None (occurrence: None)
  Receive Date: 20120227
  Receipt Date: 20120227
  Transmission Date: 20120608
  Serious: No
  Sender: FDA-Public Use
  Company Number: None

PATIENT
  Age: 68 Year
  Sex: Female
  Weight: 81.646 kg

DRUGS (1)
  1. PRADAXA [Suspect]
     Indication: THROMBOSIS PROPHYLAXIS
     Dosage: 1 IN AM, 1 IN PM
     Dates: start: 20110815, end: 20120223

REACTIONS (8)
  - HYPOAESTHESIA ORAL [None]
  - CHEST PAIN [None]
  - DYSPHAGIA [None]
  - INITIAL INSOMNIA [None]
  - DYSPEPSIA [None]
  - HICCUPS [None]
  - THROAT IRRITATION [None]
  - SENSATION OF HEAVINESS [None]
